FAERS Safety Report 20805547 (Version 2)
Quarter: 2022Q2

REPORT INFORMATION
  Report Type: Spontaneous
  Country: US (occurrence: None)
  Receive Date: 20220510
  Receipt Date: 20220610
  Transmission Date: 20220721
  Serious: No
  Sender: FDA-Public Use
  Company Number: 2022A175473

PATIENT
  Age: 56 Year
  Sex: Male
  Weight: 102.1 kg

DRUGS (1)
  1. BUDESONIDE\FORMOTEROL\GLYCOPYRRONIUM [Suspect]
     Active Substance: BUDESONIDE\FORMOTEROL\GLYCOPYRRONIUM
     Indication: Chronic obstructive pulmonary disease
     Dosage: 60/7.2/5.0MCG, 2 PUFFS BID
     Route: 055
     Dates: start: 2019

REACTIONS (4)
  - Pneumonia [Unknown]
  - COVID-19 [Recovering/Resolving]
  - Device use issue [Not Recovered/Not Resolved]
  - Device leakage [Unknown]

NARRATIVE: CASE EVENT DATE: 20190101
